FAERS Safety Report 7409915-3 (Version None)
Quarter: 2011Q2

REPORT INFORMATION
  Report Type: 
  Country: None (occurrence: None)
  Receive Date: 20110412
  Receipt Date: 20110405
  Transmission Date: 20111010
  Serious: Yes (Other)
  Sender: FDA-Public Use
  Company Number: US-ELI_LILLY_AND_COMPANY-US201104001600

PATIENT
  Sex: Female

DRUGS (3)
  1. HUMALOG [Suspect]
     Indication: DIABETES MELLITUS
     Dosage: UNK, UNKNOWN
  2. APIDRA [Concomitant]
  3. NOVOLOG [Concomitant]

REACTIONS (3)
  - INJECTION SITE PAIN [None]
  - HYPERSENSITIVITY [None]
  - DIABETIC KETOACIDOSIS [None]
